FAERS Safety Report 8485583-7 (Version None)
Quarter: 2012Q2

REPORT INFORMATION
  Report Type: 
  Country: None (occurrence: None)
  Receive Date: 20120627
  Receipt Date: 20120627
  Transmission Date: 20120825
  Serious: Yes (Other)
  Sender: FDA-Public Use
  Company Number: None

PATIENT
  Age: 63 Year
  Sex: Female
  Weight: 87.0906 kg

DRUGS (2)
  1. AMERIGEL WOUND DRESSING AMERX HEALTH CARE CORP [Suspect]
     Indication: NAIL OPERATION
     Dosage: THIN COAT TWICE DAILY TOP
     Route: 061
     Dates: start: 20120607, end: 20120611
  2. AMERIGEL WOUND WASH AMERX HEALTH CARE CORP [Suspect]
     Indication: NAIL OPERATION
     Dosage: ENOUGH TO WASH TWICE DAILY TOP
     Route: 061
     Dates: start: 20120607, end: 20120611

REACTIONS (1)
  - CHEMICAL INJURY [None]
